FAERS Safety Report 7756918 (Version 6)
Quarter: 2015Q4

REPORT INFORMATION
  Report Type: Report from Study
  Country: JP (occurrence: JP)
  Receive Date: 20110112
  Receipt Date: 20151111
  Transmission Date: 20160305
  Serious: Yes (Death, Hospitalization, Other)
  Sender: FDA-Public Use
  Company Number: JP-AMGEN-JPNCT2011000849

PATIENT
  Age: 74 Year
  Sex: Female
  Weight: 61 kg

DRUGS (10)
  1. NERISONA [Concomitant]
     Active Substance: DIFLUCORTOLONE VALERATE
     Dosage: UNK, BID
     Route: 062
     Dates: start: 20101022, end: 20101104
  2. METFORMIN [Concomitant]
     Active Substance: METFORMIN HYDROCHLORIDE
     Indication: DIABETES MELLITUS
     Dosage: 250 MG, TID
     Route: 048
     Dates: start: 20100818, end: 20110204
  3. HUMULIN 3/7 [Concomitant]
     Indication: DIABETES MELLITUS
     Dosage: 60 IU, BID
     Route: 058
     Dates: start: 20100818, end: 20110204
  4. IRINOTECAN HYDROCHLORIDE. [Suspect]
     Active Substance: IRINOTECAN HYDROCHLORIDE
     Indication: COLORECTAL CANCER
     Dosage: 40 MG, Q2WEEKS
     Route: 041
     Dates: start: 20100818, end: 20101027
  5. FLUOROURACIL. [Suspect]
     Active Substance: FLUOROURACIL
     Indication: COLORECTAL CANCER
     Dosage: 2500 MG, Q2WEEKS
     Route: 041
     Dates: start: 20100818, end: 20101027
  6. CALCIUM LEVOFOLINATE [Concomitant]
     Active Substance: LEVOLEUCOVORIN CALCIUM
     Indication: COLORECTAL CANCER
     Dosage: 225 MG, Q2WEEKS
     Route: 041
     Dates: start: 20100818, end: 20101027
  7. KINDAVATE [Concomitant]
     Dosage: UNK
     Route: 062
     Dates: start: 20100823, end: 20101021
  8. PANITUMUMAB [Suspect]
     Active Substance: PANITUMUMAB
     Indication: COLORECTAL CANCER
     Dosage: 6 MG/KG, Q2WEEKS
     Route: 041
     Dates: start: 20100818, end: 20101027
  9. CINAL [Concomitant]
     Active Substance: ASCORBIC ACID\CALCIUM PANTOTHENATE
     Dosage: 1 G, TID
     Route: 048
     Dates: start: 20101022, end: 20101104
  10. TRANSAMIN [Concomitant]
     Active Substance: TRANEXAMIC ACID
     Dosage: 250 MG, TID
     Route: 048
     Dates: start: 20101022, end: 20101104

REACTIONS (12)
  - Proteinuria [Not Recovered/Not Resolved]
  - Hypomagnesaemia [Unknown]
  - Subcutaneous abscess [Recovering/Resolving]
  - Condition aggravated [Fatal]
  - Oedema peripheral [Recovering/Resolving]
  - Dermatitis acneiform [Recovering/Resolving]
  - Glossitis [Recovering/Resolving]
  - Colorectal cancer [Fatal]
  - Blood urine present [Not Recovered/Not Resolved]
  - Stomatitis [Recovering/Resolving]
  - Purpura [Recovering/Resolving]
  - Nasal inflammation [Recovering/Resolving]

NARRATIVE: CASE EVENT DATE: 20100830
